FAERS Safety Report 15441188 (Version 3)
Quarter: 2019Q1

REPORT INFORMATION
  Report Type: Spontaneous
  Country: US (occurrence: US)
  Receive Date: 20180928
  Receipt Date: 20190304
  Transmission Date: 20190417
  Serious: No
  Sender: FDA-Public Use
  Company Number: US-PFIZER INC-2018388355

PATIENT
  Age: 77 Year
  Sex: Male
  Weight: 73.94 kg

DRUGS (1)
  1. VFEND [Suspect]
     Active Substance: VORICONAZOLE
     Indication: ASPERGILLUS INFECTION
     Dosage: 300 MG (6 TABLETS OF 50 MG), 2X/DAY
     Route: 048

REACTIONS (3)
  - Skin discolouration [Recovered/Resolved]
  - Photosensitivity reaction [Recovered/Resolved]
  - Dermatitis acneiform [Recovered/Resolved]

NARRATIVE: CASE EVENT DATE: 201809
